FAERS Safety Report 7259441-X (Version None)
Quarter: 2011Q1

REPORT INFORMATION
  Report Type: 
  Country: None (occurrence: None)
  Receive Date: 20110129
  Receipt Date: 20100826
  Transmission Date: 20110831
  Serious: No
  Sender: FDA-Public Use
  Company Number: US-ABBOTT-10P-163-0666593-00

PATIENT
  Age: 27 Year
  Sex: Female

DRUGS (4)
  1. VENTOLIN [Concomitant]
     Indication: ASTHMA
     Route: 055
  2. HUMIRA [Suspect]
     Indication: PSORIATIC ARTHROPATHY
     Dates: start: 20100801
  3. XANAX [Concomitant]
     Indication: ANXIETY
     Dosage: AS NEEDED
  4. VICODIN [Concomitant]
     Indication: PAIN

REACTIONS (1)
  - INJECTION SITE PAIN [None]
